FAERS Safety Report 9796639 (Version 1)
Quarter: 2014Q1

REPORT INFORMATION
  Report Type: Spontaneous
  Country: US (occurrence: US)
  Receive Date: 20140103
  Receipt Date: 20140103
  Transmission Date: 20141002
  Serious: Yes (Other)
  Sender: FDA-Public Use
  Company Number: US-TEVA-453124USA

PATIENT
  Sex: Female
  Weight: 65.83 kg

DRUGS (7)
  1. PROAIR HFA [Suspect]
     Dosage: 2 EVERY 4 TO 6 HOURS
     Route: 055
  2. ADVAIR [Concomitant]
  3. VENTOLIN [Concomitant]
  4. IPRATROPIUM BROMIDE [Concomitant]
  5. ALBUTEROL [Concomitant]
  6. BLOOD PRESSURE MEDICATIONS [Concomitant]
     Indication: BLOOD PRESSURE
  7. PSYCHIATRIC MEDICATIONS [Concomitant]

REACTIONS (2)
  - Choking [Unknown]
  - Cough [Unknown]
